FAERS Safety Report 18065287 (Version 1)
Quarter: 2020Q3

REPORT INFORMATION
  Report Type: Spontaneous
  Country: ES (occurrence: ES)
  Receive Date: 20200724
  Receipt Date: 20200724
  Transmission Date: 20201103
  Serious: Yes (Other)
  Sender: FDA-Public Use
  Company Number: ES-ACCORD-192600

PATIENT
  Age: 41 Year
  Sex: Male

DRUGS (2)
  1. SPIRONOLACTONE. [Suspect]
     Active Substance: SPIRONOLACTONE
     Indication: HYPOKALAEMIA
     Route: 065
     Dates: start: 20200106
  2. POTASSIUM BITARTRATE. [Interacting]
     Active Substance: POTASSIUM BITARTRATE
     Indication: HYPOKALAEMIA
     Route: 065
     Dates: start: 20200106

REACTIONS (2)
  - Labelled drug-drug interaction medication error [Unknown]
  - Hyperkalaemia [Unknown]

NARRATIVE: CASE EVENT DATE: 20200106
